FAERS Safety Report 13412694 (Version 2)
Quarter: 2017Q4

REPORT INFORMATION
  Report Type: Spontaneous
  Country: US (occurrence: US)
  Receive Date: 20170406
  Receipt Date: 20171123
  Transmission Date: 20180320
  Serious: No
  Sender: FDA-Public Use
  Company Number: US-JNJFOC-20170309333

PATIENT
  Sex: Male

DRUGS (1)
  1. RISPERDAL [Suspect]
     Active Substance: RISPERIDONE
     Indication: SCHIZOPHRENIA
     Dosage: V1: VARYING DOSES OF 1 MG AND 3 MG.
     Route: 048
     Dates: start: 20010309, end: 20030325

REACTIONS (2)
  - Gynaecomastia [Unknown]
  - Emotional disorder [Unknown]
